FAERS Safety Report 14302126 (Version 1)
Quarter: 2017Q4

REPORT INFORMATION
  Report Type: Spontaneous
  Country: FR (occurrence: FR)
  Receive Date: 20171219
  Receipt Date: 20171219
  Transmission Date: 20180321
  Serious: Yes (Life-Threatening, Hospitalization, Other)
  Sender: FDA-Public Use
  Company Number: FR-MYLANLABS-2017M1079136

PATIENT
  Sex: Female
  Weight: 1.49 kg

DRUGS (6)
  1. ASPARAGINASE [Suspect]
     Active Substance: ASPARAGINASE
     Indication: B PRECURSOR TYPE ACUTE LEUKAEMIA
     Route: 064
  2. ONCOVIN [Suspect]
     Active Substance: VINCRISTINE SULFATE
     Indication: B PRECURSOR TYPE ACUTE LEUKAEMIA
     Dosage: UNK
     Route: 064
  3. DAUNORUBICINE [Suspect]
     Active Substance: DAUNORUBICIN
     Indication: PRODUCT USED FOR UNKNOWN INDICATION
  4. CELESTENE [Suspect]
     Active Substance: BETAMETHASONE
     Indication: MATURE B-CELL TYPE ACUTE LEUKAEMIA
     Route: 064
  5. DEXAMETHASONE. [Suspect]
     Active Substance: DEXAMETHASONE
     Indication: PROPHYLAXIS
     Route: 064
  6. PREDNISONE. [Suspect]
     Active Substance: PREDNISONE
     Indication: PRODUCT USED FOR UNKNOWN INDICATION
     Route: 064

REACTIONS (4)
  - Foetal exposure during pregnancy [Recovered/Resolved]
  - Neonatal respiratory distress syndrome [Recovered/Resolved]
  - Anaemia [Recovering/Resolving]
  - Premature delivery [Recovered/Resolved]

NARRATIVE: CASE EVENT DATE: 20161129
